FAERS Safety Report 24696029 (Version 2)
Quarter: 2024Q4

REPORT INFORMATION
  Report Type: Spontaneous
  Country: JP (occurrence: JP)
  Receive Date: 20241204
  Receipt Date: 20241218
  Transmission Date: 20250115
  Serious: Yes (Other)
  Sender: REGENERON
  Company Number: JP-BAYER-2024A170441

PATIENT
  Age: 83 Year
  Sex: Male

DRUGS (1)
  1. EYLEA [Suspect]
     Active Substance: AFLIBERCEPT
     Indication: Product used for unknown indication
     Dosage: RIGHT EYE, 8MG, SOLUTION FOR INJECTION IN PRE-FILLED SYRINGE , 40 MG/ML
     Route: 031
     Dates: start: 20241119, end: 20241121

REACTIONS (4)
  - Visual acuity reduced [Recovering/Resolving]
  - Vitreous opacities [Recovering/Resolving]
  - Endophthalmitis [Recovering/Resolving]
  - Product use issue [Unknown]

NARRATIVE: CASE EVENT DATE: 20241121
